FAERS Safety Report 18071312 (Version 1)
Quarter: 2020Q3

REPORT INFORMATION
  Report Type: Spontaneous
  Country: JP (occurrence: JP)
  Receive Date: 20200727
  Receipt Date: 20200727
  Transmission Date: 20201103
  Serious: Yes (Other)
  Sender: FDA-Public Use
  Company Number: PHJP2018JP019609

PATIENT
  Age: 10 Year
  Sex: Male

DRUGS (2)
  1. TEGRETOL [Suspect]
     Active Substance: CARBAMAZEPINE
     Indication: AUTISM SPECTRUM DISORDER
     Dosage: 200 MG
     Route: 048
  2. TEGRETOL [Suspect]
     Active Substance: CARBAMAZEPINE
     Indication: AGITATION
     Dosage: 400 MG
     Route: 048

REACTIONS (8)
  - Erythema [Not Recovered/Not Resolved]
  - Flushing [Unknown]
  - Pyrexia [Unknown]
  - Lymphadenopathy [Unknown]
  - Hepatic function abnormal [Unknown]
  - Off label use [Unknown]
  - Drug reaction with eosinophilia and systemic symptoms [Recovered/Resolved]
  - Rash [Unknown]
